FAERS Safety Report 5876822-7 (Version None)
Quarter: 2008Q3

REPORT INFORMATION
  Report Type: 
  Country: None (occurrence: None)
  Receive Date: 20080908
  Receipt Date: 20080908
  Transmission Date: 20090109
  Serious: Yes (Hospitalization)
  Sender: FDA-Public Use
  Company Number: None

PATIENT
  Age: 75 Year
  Sex: Male

DRUGS (1)
  1. ATENOLOL [Suspect]
     Dosage: 25 MG EVERY DAY PO
     Route: 048
     Dates: start: 20051025, end: 20080901

REACTIONS (6)
  - ASTHENIA [None]
  - ATRIOVENTRICULAR BLOCK COMPLETE [None]
  - ATRIOVENTRICULAR BLOCK FIRST DEGREE [None]
  - ATRIOVENTRICULAR BLOCK SECOND DEGREE [None]
  - DYSPNOEA [None]
  - NAUSEA [None]
